FAERS Safety Report 12208289 (Version 1)
Quarter: 2016Q1

REPORT INFORMATION
  Report Type: Spontaneous
  Country: AU (occurrence: AU)
  Receive Date: 20160324
  Receipt Date: 20160324
  Transmission Date: 20160526
  Serious: Yes (Other)
  Sender: FDA-Public Use
  Company Number: AU-ASTRAZENECA-2016SE14599

PATIENT
  Sex: Female

DRUGS (2)
  1. FORXIGA [Suspect]
     Active Substance: DAPAGLIFLOZIN
     Route: 048
  2. HUMALOG MIX75/25 [Concomitant]
     Active Substance: INSULIN LISPRO
     Route: 058

REACTIONS (1)
  - Candida infection [Recovering/Resolving]
